FAERS Safety Report 6577156-8 (Version None)
Quarter: 2010Q1

REPORT INFORMATION
  Report Type: 
  Country: None (occurrence: None)
  Receive Date: 20100210
  Receipt Date: 20100128
  Transmission Date: 20100710
  Serious: Yes (Hospitalization, Other)
  Sender: FDA-Public Use
  Company Number: PHHY2010JP04917

PATIENT
  Age: 50 Year
  Sex: Male

DRUGS (9)
  1. NILOTINIB [Suspect]
     Indication: CHRONIC MYELOID LEUKAEMIA
     Dosage: UNK
     Dates: start: 20061001
  2. NILOTINIB [Suspect]
     Dosage: 400 MG, BID
  3. DAUNORUBICIN HCL [Suspect]
     Indication: WHITE BLOOD CELL COUNT INCREASED
     Dosage: 50 MG/M2
  4. CYTOSINE ARABINOSIDE [Suspect]
     Indication: WHITE BLOOD CELL COUNT INCREASED
     Dosage: 100 MG/M2
  5. DASATINIB [Concomitant]
     Indication: BLAST CRISIS IN MYELOGENOUS LEUKAEMIA
     Dosage: 100 MG DAILY
     Dates: start: 20081201
  6. FLUDARABINE [Concomitant]
     Dosage: 30 MG/M2 PER DAY
  7. MELPHALAN HYDROCHLORIDE [Concomitant]
     Dosage: 40 MG/M2 PER DAY
  8. TACROLIMUS [Concomitant]
     Indication: PROPHYLAXIS AGAINST GRAFT VERSUS HOST DISEASE
     Dosage: 25-35 NG/ML
  9. DALTEPARIN [Concomitant]
     Indication: PROPHYLAXIS

REACTIONS (5)
  - BLAST CRISIS IN MYELOGENOUS LEUKAEMIA [None]
  - PANCYTOPENIA [None]
  - PNEUMONIA [None]
  - SUBCUTANEOUS ABSCESS [None]
  - WHITE BLOOD CELL COUNT INCREASED [None]
